FAERS Safety Report 21415376 (Version 2)
Quarter: 2022Q4

REPORT INFORMATION
  Report Type: Report from Study
  Country: AU (occurrence: AU)
  Receive Date: 20221006
  Receipt Date: 20221014
  Transmission Date: 20230113
  Serious: Yes (Other)
  Sender: FDA-Public Use
  Company Number: AU-ABBVIE-4139006

PATIENT
  Age: 63 Year
  Sex: Female

DRUGS (2)
  1. CARBIDOPA\LEVODOPA [Suspect]
     Active Substance: CARBIDOPA\LEVODOPA
     Indication: Parkinson^s disease
     Dosage: 16 HOURS
     Route: 050
     Dates: start: 20220929
  2. CARBIDOPA\LEVODOPA [Suspect]
     Active Substance: CARBIDOPA\LEVODOPA

REACTIONS (3)
  - Procedural complication [Unknown]
  - Device issue [Recovered/Resolved with Sequelae]
  - Procedural pain [Unknown]

NARRATIVE: CASE EVENT DATE: 20220929
